FAERS Safety Report 9680566 (Version 4)
Quarter: 2013Q4

REPORT INFORMATION
  Report Type: Spontaneous
  Country: US (occurrence: US)
  Receive Date: 20131111
  Receipt Date: 20131218
  Transmission Date: 20140711
  Serious: Yes (Disabling, Other)
  Sender: FDA-Public Use
  Company Number: US-PFIZER INC-2013319074

PATIENT
  Age: 48 Year
  Sex: Male
  Weight: 68.03 kg

DRUGS (8)
  1. CELEBREX [Suspect]
     Indication: PAIN IN EXTREMITY
     Dosage: 200 MG, 2X/DAY
     Dates: start: 20131102
  2. CELEBREX [Suspect]
     Indication: ARTHRALGIA
     Dosage: UNKNOWN DOSE DAILY
     Dates: end: 201311
  3. IBUPROFEN [Suspect]
     Indication: PAIN IN EXTREMITY
     Dosage: 600 MG, EVERY 4 HRS
     Dates: start: 2013, end: 20131106
  4. IBUPROFEN [Suspect]
     Indication: ARTHRALGIA
  5. GABAPENTIN [Suspect]
     Indication: PAIN IN EXTREMITY
     Dosage: 100 MG, 3X/DAY
     Dates: start: 201311
  6. GABAPENTIN [Suspect]
     Dosage: 100 MG, 4X/DAY
  7. FLUTICASONE [Concomitant]
     Indication: HYPERSENSITIVITY
     Dosage: 50 UG(SPRAY)
  8. OMEPRAZOLE [Concomitant]
     Indication: HYPERCHLORHYDRIA
     Dosage: 100 MG, DAILY

REACTIONS (6)
  - Drug dose omission [Unknown]
  - Intentional drug misuse [Unknown]
  - Activities of daily living impaired [Unknown]
  - Pain in extremity [Not Recovered/Not Resolved]
  - Abdominal discomfort [Unknown]
  - Drug ineffective [Unknown]
